FAERS Safety Report 12243823 (Version 2)
Quarter: 2016Q2

REPORT INFORMATION
  Report Type: Report from Study
  Country: GT (occurrence: GT)
  Receive Date: 20160406
  Receipt Date: 20160421
  Transmission Date: 20160815
  Serious: Yes (Other)
  Sender: FDA-Public Use
  Company Number: PHHY2016GT044365

PATIENT
  Age: 60 Year
  Sex: Female

DRUGS (2)
  1. EXFORGE [Suspect]
     Active Substance: AMLODIPINE BESYLATE\VALSARTAN
     Indication: HYPERTENSION
     Dosage: 1 DF (160 MG VALSARTAN, 5MG AMLODIPINE), QHS
     Route: 065
     Dates: start: 201602
  2. EXFORGE [Suspect]
     Active Substance: AMLODIPINE BESYLATE\VALSARTAN
     Dosage: UNK
     Route: 065
     Dates: start: 20160401

REACTIONS (4)
  - Vision blurred [Recovered/Resolved]
  - Abdominal hernia [Unknown]
  - Malaise [Unknown]
  - Dizziness [Recovered/Resolved]
